FAERS Safety Report 16231764 (Version 1)
Quarter: 2019Q2

REPORT INFORMATION
  Report Type: Spontaneous
  Country: SE (occurrence: SE)
  Receive Date: 20190424
  Receipt Date: 20190424
  Transmission Date: 20190711
  Serious: Yes (Hospitalization)
  Sender: FDA-Public Use
  Company Number: SE-JNJFOC-20190433276

PATIENT
  Age: 21 Year
  Sex: Male

DRUGS (2)
  1. IMODIUM [Suspect]
     Active Substance: LOPERAMIDE HYDROCHLORIDE
     Route: 048
  2. IMODIUM [Suspect]
     Active Substance: LOPERAMIDE HYDROCHLORIDE
     Indication: PRODUCT USED FOR UNKNOWN INDICATION
     Route: 048
     Dates: start: 201204, end: 201204

REACTIONS (8)
  - Liver function test abnormal [Unknown]
  - Amylase abnormal [Unknown]
  - Loss of consciousness [Unknown]
  - Alanine aminotransferase abnormal [Unknown]
  - Intentional overdose [Unknown]
  - Acidosis [Unknown]
  - Intentional self-injury [Unknown]
  - Respiratory rate decreased [Unknown]

NARRATIVE: CASE EVENT DATE: 201204
